FAERS Safety Report 8081965-6 (Version None)
Quarter: 2012Q1

REPORT INFORMATION
  Report Type: 
  Country: None (occurrence: None)
  Receive Date: 20120130
  Receipt Date: 20111012
  Transmission Date: 20120608
  Serious: Yes (Hospitalization, Other)
  Sender: FDA-Public Use
  Company Number: US-ABBOTT-11P-163-0865183-00

PATIENT
  Sex: Male

DRUGS (1)
  1. LUPRON DEPOT [Suspect]
     Indication: PROSTATE CANCER
     Dosage: ONLY RECEIVED ONCE, DOSE WAS UNKNOWN
     Route: 050
     Dates: start: 20110930, end: 20110930

REACTIONS (3)
  - HEADACHE [None]
  - MALAISE [None]
  - PITUITARY HAEMORRHAGE [None]
